FAERS Safety Report 4299007-7 (Version None)
Quarter: 2004Q1

REPORT INFORMATION
  Report Type: 
  Country: None (occurrence: None)
  Receive Date: 20040217
  Receipt Date: 20040201
  Transmission Date: 20041129
  Serious: Yes (Hospitalization, Other)
  Sender: FDA-Public Use
  Company Number: 2004006488

PATIENT
  Age: 53 Year
  Sex: Female
  Weight: 58.0604 kg

DRUGS (6)
  1. GEODON [Suspect]
     Indication: POST-TRAUMATIC STRESS DISORDER
     Dosage: 20 MG (DAILY), ORAL
     Route: 048
     Dates: start: 20040107, end: 20040130
  2. VICODIN [Concomitant]
  3. DIAZEPAM [Concomitant]
  4. ALL OTHER THERAPEUTIC PRODUCTS [Concomitant]
  5. MULTIVITAMIN [Concomitant]
  6. TEMAZEPAM [Concomitant]

REACTIONS (21)
  - ABDOMINAL DISCOMFORT [None]
  - ABDOMINAL PAIN [None]
  - ANGINA PECTORIS [None]
  - ANOREXIA [None]
  - CARDIAC ARREST [None]
  - CARDIAC DISORDER [None]
  - CARDIAC INFECTION [None]
  - CONDITION AGGRAVATED [None]
  - CONFUSIONAL STATE [None]
  - DRUG INEFFECTIVE [None]
  - ENDODONTIC PROCEDURE [None]
  - HEART RATE INCREASED [None]
  - INFLAMMATION [None]
  - INITIAL INSOMNIA [None]
  - NERVE INJURY [None]
  - ORTHOSTATIC HYPOTENSION [None]
  - PAIN [None]
  - POST PROCEDURAL PAIN [None]
  - RHINITIS [None]
  - SKIN ULCER [None]
  - VENTRICULAR EXTRASYSTOLES [None]
